FAERS Safety Report 21126502 (Version 1)
Quarter: 2022Q3

REPORT INFORMATION
  Report Type: Spontaneous
  Country: GB (occurrence: GB)
  Receive Date: 20220725
  Receipt Date: 20220725
  Transmission Date: 20221027
  Serious: Yes (Life-Threatening, Hospitalization, Other)
  Sender: FDA-Public Use
  Company Number: GB-MHRA-MED-202207181057558810-ZDFRH

PATIENT
  Sex: Male

DRUGS (2)
  1. IXEKIZUMAB [Suspect]
     Active Substance: IXEKIZUMAB
     Indication: Ankylosing spondylitis
     Dosage: UNK UNK, UNKNOWN
     Route: 065
  2. IXEKIZUMAB [Suspect]
     Active Substance: IXEKIZUMAB
     Indication: Hernia repair

REACTIONS (2)
  - Diabetic ketoacidosis [Recovering/Resolving]
  - Oral candidiasis [Unknown]

NARRATIVE: CASE EVENT DATE: 20220713
